FAERS Safety Report 4507673-3 (Version None)
Quarter: 2004Q4

REPORT INFORMATION
  Report Type: 
  Country: None (occurrence: None)
  Receive Date: 20041118
  Receipt Date: 20041103
  Transmission Date: 20050328
  Serious: Yes (Other)
  Sender: FDA-Public Use
  Company Number: 8008046

PATIENT
  Age: 43 Year
  Sex: Female

DRUGS (2)
  1. KEPPRA [Suspect]
     Indication: EPILEPSY
     Dosage: 1000 MG D/PO
     Route: 048
     Dates: start: 20040701, end: 20040801
  2. PHENYTOIN [Concomitant]

REACTIONS (1)
  - PARANOIA [None]
